FAERS Safety Report 21226691 (Version 1)
Quarter: 2022Q3

REPORT INFORMATION
  Report Type: Spontaneous
  Country: ES (occurrence: ES)
  Receive Date: 20220818
  Receipt Date: 20220818
  Transmission Date: 20221026
  Serious: Yes (Life-Threatening, Other)
  Sender: FDA-Public Use
  Company Number: ES-TEVA-2022-ES-2054408

PATIENT
  Age: 86 Year
  Sex: Female

DRUGS (3)
  1. AMLODIPINE [Suspect]
     Active Substance: AMLODIPINE BESYLATE
     Indication: Cardiovascular disorder
     Dosage: 5 MILLIGRAM, ONCE A DAY
     Route: 048
     Dates: start: 201901
  2. FUROSEMIDE [Suspect]
     Active Substance: FUROSEMIDE
     Indication: Blood pressure abnormal
     Dosage: 40 MILLIGRAM, ONCE A DAY
     Route: 048
     Dates: start: 202110
  3. METAMIZOLE [Suspect]
     Active Substance: METAMIZOLE
     Indication: Abdominal pain
     Dosage: 575 MILLIGRAM, 3 TIMES A DAY (1725 MILLIGRAM DAILY;)
     Route: 048
     Dates: start: 202201

REACTIONS (4)
  - Hypotension [Recovered/Resolved]
  - Fatigue [Recovered/Resolved]
  - Dizziness [Recovered/Resolved]
  - Incorrect dose administered [Unknown]

NARRATIVE: CASE EVENT DATE: 20220201
